FAERS Safety Report 13122116 (Version 2)
Quarter: 2017Q1

REPORT INFORMATION
  Report Type: Spontaneous
  Country: US (occurrence: US)
  Receive Date: 20170117
  Receipt Date: 20170131
  Transmission Date: 20170428
  Serious: No
  Sender: FDA-Public Use
  Company Number: US-BAXTER-2017BAX000809

PATIENT
  Age: 75 Year
  Sex: Female

DRUGS (1)
  1. CLINIMIX E [Suspect]
     Active Substance: ALANINE\AMINO ACIDS\ARGININE\CALCIUM CHLORIDE\DEXTROSE\GLYCINE\HISTIDINE\ISOLEUCINE\LEUCINE\LYSINE\MAGNESIUM CHLORIDE\METHIONINE\PHENYLALANINE\POTASSIUM PHOSPHATE, DIBASIC\PROLINE\PROLINE, DL-\SERINE\SODIUM ACETATE\SODIUM CHLORIDE\THREONINE\TRYPTOPHAN\TYROSINE\VALINE
     Indication: PARENTERAL NUTRITION
     Dosage: STRENGTH: 4.25/10, 1 BAG/12 HOURS
     Route: 042
     Dates: start: 20161231, end: 20161231

REACTIONS (3)
  - Urticaria [Unknown]
  - Cough [Recovered/Resolved]
  - Dyspnoea [Recovered/Resolved]

NARRATIVE: CASE EVENT DATE: 20161231
